FAERS Safety Report 6571304-1 (Version None)
Quarter: 2010Q1

REPORT INFORMATION
  Report Type: 
  Country: None (occurrence: None)
  Receive Date: 20100129
  Receipt Date: 20100118
  Transmission Date: 20100710
  Serious: Yes (Hospitalization)
  Sender: FDA-Public Use
  Company Number: 2010AL000472

PATIENT
  Age: 69 Year
  Sex: Male

DRUGS (5)
  1. FLUOXETINE [Suspect]
     Indication: DEPRESSION
     Dosage: 20 MG;QAM;PO
     Route: 048
     Dates: end: 20040310
  2. TOLTERODINE TARTRATE [Concomitant]
  3. ISPAGHULA HUSK [Concomitant]
  4. SENNA [Concomitant]
  5. LANSOPRAZOLE [Concomitant]

REACTIONS (2)
  - CHOREA [None]
  - DYSKINESIA [None]
